FAERS Safety Report 20131450 (Version 2)
Quarter: 2022Q1

REPORT INFORMATION
  Report Type: Spontaneous
  Country: ES (occurrence: ES)
  Receive Date: 20211130
  Receipt Date: 20220302
  Transmission Date: 20220423
  Serious: Yes (Other)
  Sender: FDA-Public Use
  Company Number: None

PATIENT
  Age: 74 Year
  Sex: Female

DRUGS (3)
  1. FLUCONAZOLE [Interacting]
     Active Substance: FLUCONAZOLE
     Indication: Onychomycosis
     Dosage: WEEKLY, FLUCONAZOL (2432A)
     Route: 048
     Dates: start: 20210901, end: 20211104
  2. RISPERIDONE [Interacting]
     Active Substance: RISPERIDONE
     Indication: Schizophrenia
     Dosage: RISPERIDONE (7201A)
     Route: 065
     Dates: start: 2020
  3. HALOPERIDOL [Interacting]
     Active Substance: HALOPERIDOL
     Indication: Schizophrenia
     Dosage: HALOPERIDOL (1693A)
     Route: 065
     Dates: start: 20150615

REACTIONS (2)
  - Long QT syndrome [Unknown]
  - Drug interaction [Unknown]

NARRATIVE: CASE EVENT DATE: 20211103
